FAERS Safety Report 21116457 (Version 1)
Quarter: 2022Q3

REPORT INFORMATION
  Report Type: Spontaneous
  Country: SE (occurrence: SE)
  Receive Date: 20220722
  Receipt Date: 20220722
  Transmission Date: 20221026
  Serious: Yes (Other)
  Sender: FDA-Public Use
  Company Number: SE-556718978P-EVOL003510

PATIENT
  Sex: Male

DRUGS (1)
  1. IMODIUM [Suspect]
     Active Substance: LOPERAMIDE HYDROCHLORIDE
     Indication: Product used for unknown indication
     Dosage: 8 YEARS AGO
     Route: 065

REACTIONS (4)
  - Drug dependence [Unknown]
  - Drug tolerance [Unknown]
  - Mental disorder [Unknown]
  - General physical health deterioration [Unknown]
